FAERS Safety Report 23902929 (Version 1)
Quarter: 2024Q2

REPORT INFORMATION
  Report Type: Spontaneous
  Country: US (occurrence: US)
  Receive Date: 20240527
  Receipt Date: 20240527
  Transmission Date: 20240715
  Serious: Yes (Life-Threatening, Hospitalization, Other)
  Sender: FDA-Public Use
  Company Number: US-Indicus Pharma-001018

PATIENT
  Age: 49 Year
  Sex: Female

DRUGS (1)
  1. METFORMIN HYDROCHLORIDE [Suspect]
     Active Substance: METFORMIN HYDROCHLORIDE
     Indication: Type 2 diabetes mellitus
     Dosage: DOSE HAD BEEN INCREASED FROM 500 TO 1000 MG TWO TIMES DAILY A MONTH PRIOR

REACTIONS (8)
  - Toxicity to various agents [Recovered/Resolved]
  - Lactic acidosis [Recovered/Resolved]
  - Pancreatitis [Recovered/Resolved]
  - Pneumonia aspiration [Recovered/Resolved]
  - Gastrointestinal oedema [Recovered/Resolved]
  - Acute kidney injury [Recovered/Resolved]
  - Septic shock [Recovered/Resolved]
  - Unresponsive to stimuli [Recovered/Resolved]
